FAERS Safety Report 15632326 (Version 2)
Quarter: 2018Q4

REPORT INFORMATION
  Report Type: Spontaneous
  Country: GR (occurrence: GR)
  Receive Date: 20181119
  Receipt Date: 20181206
  Transmission Date: 20190205
  Serious: Yes (Other)
  Sender: FDA-Public Use
  Company Number: GR-PFIZER INC-2018468697

PATIENT
  Age: 84 Year
  Sex: Female

DRUGS (2)
  1. METHYLPREDNISOLONE. [Suspect]
     Active Substance: METHYLPREDNISOLONE
     Indication: PERICARDIAL EFFUSION
     Dosage: UNK (GRADUALLY REDUCED)
  2. METHYLPREDNISOLONE. [Suspect]
     Active Substance: METHYLPREDNISOLONE
     Indication: PLEURAL EFFUSION

REACTIONS (2)
  - Necrotising retinitis [Recovered/Resolved]
  - Nocardiosis [Recovered/Resolved]
